FAERS Safety Report 9843802 (Version 1)
Quarter: 2013Q4

REPORT INFORMATION
  Report Type: Spontaneous
  Country: US (occurrence: None)
  Receive Date: 20131223
  Receipt Date: 20131223
  Transmission Date: 20140711
  Serious: No
  Sender: FDA-Public Use
  Company Number: 1000049971

PATIENT
  Age: 62 None
  Sex: Female

DRUGS (9)
  1. LINZESS (LINACLOTIDE) (290 MICROGRAM, CAPSULES) [Suspect]
     Indication: CONSTIPATION
     Dosage: 290 MCG (290 MCG, 1 IN 1 D), ORAL
     Route: 048
     Dates: start: 20130929
  2. LINZESS (LINACLOTIDE) (290 MICROGRAM, CAPSULES) [Suspect]
     Indication: IRRITABLE BOWEL SYNDROME
     Dosage: 290 MCG (290 MCG, 1 IN 1 D), ORAL
     Route: 048
     Dates: start: 20130929
  3. LYRICA (PREGABALIN) (PREGABALIN) [Concomitant]
  4. KLONOPIN (CLONAZEPAM) (CLONAZEPAM) [Concomitant]
  5. FISH OIL (FISH OIL) (FISH OIL) [Concomitant]
  6. DOMPERIDONE (DOMPERIDONE) (DOMPERIDONE) [Concomitant]
  7. PRILOSEC (OMEPRAZOLE) (OMEPRAZOLE) [Concomitant]
  8. SURFAK (DOCUSATE CALCIUM) (DOCUSATE CALCIUM) [Concomitant]
  9. MAGNESIUM (MAGNESIUM) (MAGNESIUM) [Concomitant]

REACTIONS (1)
  - Abdominal distension [None]
